FAERS Safety Report 6150353-1 (Version None)
Quarter: 2009Q2

REPORT INFORMATION
  Report Type: 
  Country: None (occurrence: None)
  Receive Date: 20090409
  Receipt Date: 20090326
  Transmission Date: 20091009
  Serious: Yes (Life-Threatening, Hospitalization)
  Sender: FDA-Public Use
  Company Number: IT-GENENTECH-263524

PATIENT
  Sex: Female

DRUGS (6)
  1. BLINDED PLACEBO [Suspect]
     Indication: BREAST CANCER METASTATIC
     Dosage: 840 MG, UNK
     Route: 042
     Dates: start: 20080618
  2. BLINDED PERTUZUMAB [Suspect]
     Indication: BREAST CANCER METASTATIC
     Dosage: 840 MG, UNK
     Route: 042
     Dates: start: 20080618
  3. BLINDED PLACEBO [Suspect]
     Dosage: 420 MG, UNK
     Route: 042
  4. BLINDED PERTUZUMAB [Suspect]
     Dosage: 420 MG, UNK
     Route: 042
  5. HERCEPTIN [Suspect]
     Indication: BREAST CANCER METASTATIC
     Dosage: 8 MG/KG, Q21D
     Route: 042
     Dates: start: 20080619, end: 20080619
  6. DOCETAXEL [Suspect]
     Indication: BREAST CANCER METASTATIC

REACTIONS (1)
  - DRUG HYPERSENSITIVITY [None]
